FAERS Safety Report 8776803 (Version 1)
Quarter: 2012Q4

REPORT INFORMATION
  Report Type: 
  Country: US (occurrence: US)
  Receive Date: 20120910
  Receipt Date: 20120910
  Transmission Date: 20130627
  Serious: No
  Sender: FDA-Public Use
  Company Number: US-PFIZER INC-2012220445

PATIENT
  Age: 55 Year
  Sex: Male

DRUGS (2)
  1. ZOLOFT [Suspect]
     Dosage: 100 mg, (1 tablet) every day
     Route: 048
  2. CELEBREX [Suspect]
     Dosage: 200 mg, as needed (1 capsule every day)
     Route: 048

REACTIONS (2)
  - Musculoskeletal pain [Unknown]
  - Impaired work ability [Unknown]
